FAERS Safety Report 7372531-6 (Version None)
Quarter: 2011Q1

REPORT INFORMATION
  Report Type: 
  Country: None (occurrence: None)
  Receive Date: 20110324
  Receipt Date: 20110321
  Transmission Date: 20110831
  Serious: Yes (Hospitalization)
  Sender: FDA-Public Use
  Company Number: BR-GILEAD-2011-0037744

PATIENT
  Sex: Male

DRUGS (6)
  1. PYRAZINAMIDE [Suspect]
     Indication: TUBERCULOSIS
     Dates: start: 20110201
  2. RIFAMPIN [Suspect]
     Indication: TUBERCULOSIS
     Dates: start: 20110201
  3. ISENTRESS [Suspect]
     Indication: HIV INFECTION
     Dates: start: 20110214
  4. LAMIVUDINE [Suspect]
     Indication: HIV INFECTION
     Dates: start: 20110214
  5. TENOFOVIR DISOPROXIL FUMARATE [Suspect]
     Indication: HIV INFECTION
     Route: 048
     Dates: start: 20110214
  6. ETHAMBUTOL HYDROCHLORIDE [Suspect]
     Indication: TUBERCULOSIS
     Dates: start: 20110201

REACTIONS (1)
  - DEEP VEIN THROMBOSIS [None]
